FAERS Safety Report 8418132-X (Version None)
Quarter: 2012Q2

REPORT INFORMATION
  Report Type: 
  Country: None (occurrence: None)
  Receive Date: 20120604
  Receipt Date: 20120604
  Transmission Date: 20120825
  Serious: No
  Sender: FDA-Public Use
  Company Number: None

PATIENT
  Sex: Female
  Weight: 64.8644 kg

DRUGS (2)
  1. WELCHOL [Suspect]
  2. CRESTOR [Suspect]

REACTIONS (3)
  - ARTHROPATHY [None]
  - FATIGUE [None]
  - VISION BLURRED [None]
